FAERS Safety Report 24625368 (Version 1)
Quarter: 2024Q4

REPORT INFORMATION
  Report Type: Spontaneous
  Country: US (occurrence: None)
  Receive Date: 20241115
  Receipt Date: 20241115
  Transmission Date: 20250114
  Serious: No
  Sender: Public
  Company Number: None

PATIENT
  Age: 33 Year
  Sex: Female
  Weight: 76 kg

DRUGS (1)
  1. FLUOXETINE HCL [Suspect]
     Active Substance: FLUOXETINE
     Indication: Post-traumatic stress disorder
     Dosage: 4.00 MG DAILY ORAL?
     Route: 048
     Dates: start: 20240401, end: 20240703

REACTIONS (3)
  - Delusion [None]
  - Hallucination [None]
  - Aggression [None]

NARRATIVE: CASE EVENT DATE: 20240528
